FAERS Safety Report 7636767-9 (Version None)
Quarter: 2011Q3

REPORT INFORMATION
  Report Type: 
  Country: None (occurrence: None)
  Receive Date: 20110726
  Receipt Date: 20110721
  Transmission Date: 20111222
  Serious: Yes (Death)
  Sender: FDA-Public Use
  Company Number: TN-SANOFI-AVENTIS-2011SA046853

PATIENT
  Age: 77 Year
  Sex: Male

DRUGS (6)
  1. LASIX [Concomitant]
     Route: 048
     Dates: end: 20110715
  2. CAPTOPRIL [Concomitant]
     Route: 048
     Dates: end: 20110715
  3. ASPEGIC 325 [Concomitant]
     Route: 048
     Dates: end: 20110715
  4. ATORVASTATIN [Concomitant]
     Route: 048
     Dates: end: 20110715
  5. PLAVIX [Suspect]
     Indication: CORONARY ARTERY DISEASE
     Route: 048
     Dates: start: 20101021, end: 20110715
  6. PLAVIX [Suspect]
     Indication: STENT PLACEMENT
     Route: 048
     Dates: start: 20101021, end: 20110715

REACTIONS (1)
  - SUDDEN DEATH [None]
